FAERS Safety Report 18106551 (Version 1)
Quarter: 2020Q3

REPORT INFORMATION
  Report Type: Spontaneous
  Country: US (occurrence: US)
  Receive Date: 20200803
  Receipt Date: 20200803
  Transmission Date: 20201103
  Serious: No
  Sender: FDA-Public Use
  Company Number: None

PATIENT
  Age: 62 Year
  Sex: Male
  Weight: 60.5 kg

DRUGS (9)
  1. PHENYTOIN. [Concomitant]
     Active Substance: PHENYTOIN
     Dates: start: 20161229
  2. VITAMIN C [Concomitant]
     Active Substance: ASCORBIC ACID
     Dates: start: 20200720
  3. REMDESIVIR. [Suspect]
     Active Substance: REMDESIVIR
     Indication: COVID-19
     Dosage: ?          OTHER FREQUENCY:FOLLOWED BY 100 QD;?
     Route: 042
     Dates: start: 20200723, end: 20200727
  4. BRIMONIDINE [Concomitant]
     Active Substance: BRIMONIDINE TARTRATE
     Dates: start: 20130817
  5. BUDESONIDE?FORMOTEROL [Concomitant]
     Active Substance: BUDESONIDE\FORMOTEROL
     Dates: start: 20161229
  6. BUSPIRONE [Concomitant]
     Active Substance: BUSPIRONE HYDROCHLORIDE
     Dates: start: 20161229
  7. MEROPENEM. [Concomitant]
     Active Substance: MEROPENEM
     Dates: start: 20200720, end: 20200802
  8. BIMATOPROST. [Concomitant]
     Active Substance: BIMATOPROST
     Dates: start: 20130817
  9. VANCOMYCIN [Concomitant]
     Active Substance: VANCOMYCIN
     Dates: start: 20200719, end: 20200727

REACTIONS (3)
  - Pruritus [None]
  - Rash [None]
  - Infusion related reaction [None]

NARRATIVE: CASE EVENT DATE: 20200723
